FAERS Safety Report 4499905-5 (Version None)
Quarter: 2004Q4

REPORT INFORMATION
  Report Type: 
  Country: None (occurrence: None)
  Receive Date: 20041108
  Receipt Date: 20041020
  Transmission Date: 20050328
  Serious: Yes (Hospitalization)
  Sender: FDA-Public Use
  Company Number: 9149

PATIENT
  Age: 73 Year
  Sex: Female

DRUGS (8)
  1. METHOTREXATE [Suspect]
     Indication: RHEUMATOID ARTHRITIS
     Dosage: 6 MG WEEKLY
     Dates: start: 20040312
  2. METHOTREXATE [Suspect]
     Indication: RHEUMATOID ARTHRITIS
     Dosage: 6 MG WEEKLY
     Dates: start: 20040707
  3. METHOTREXATE [Suspect]
     Indication: RHEUMATOID ARTHRITIS
     Dosage: 6 MG WEEKLY
     Dates: start: 20040722
  4. METHOTREXATE [Suspect]
     Indication: RHEUMATOID ARTHRITIS
     Dosage: 6 MG WEEKLY
     Dates: start: 20040919
  5. INFLIXIMAB [Suspect]
     Indication: RHEUMATOID ARTHRITIS
     Dosage: 4 MG WEEKLY
     Route: 042
     Dates: start: 20040819
  6. PREDNISOLONE [Suspect]
     Indication: RHEUMATOID ARTHRITIS
     Dosage: 3 MG/KG 1 MG
     Route: 048
     Dates: start: 20020424
  7. ETODOLAC [Concomitant]
  8. MUCOSTA [Concomitant]

REACTIONS (4)
  - ACUTE TONSILLITIS [None]
  - BLOOD CREATININE INCREASED [None]
  - EATING DISORDER [None]
  - PYREXIA [None]
